FAERS Safety Report 6082527-2 (Version None)
Quarter: 2009Q1

REPORT INFORMATION
  Report Type: 
  Country: None (occurrence: None)
  Receive Date: 20090204
  Receipt Date: 20080521
  Transmission Date: 20090719
  Serious: Yes (Life-Threatening)
  Sender: FDA-Public Use
  Company Number: 275516

PATIENT
  Age: 72 Year
  Sex: Female
  Weight: 72.6 kg

DRUGS (6)
  1. NOVOLOG [Suspect]
     Indication: INSULIN-REQUIRING TYPE 2 DIABETES MELLITUS
     Dosage: TID, SUBCUTANEOUS ; SLIDING SCALE 1-5 IU, TID WITH MEALS, SUBCUTANEOUS
     Route: 058
     Dates: start: 20050101, end: 20060101
  2. NOVOLOG [Suspect]
     Indication: INSULIN-REQUIRING TYPE 2 DIABETES MELLITUS
     Dosage: TID, SUBCUTANEOUS ; SLIDING SCALE 1-5 IU, TID WITH MEALS, SUBCUTANEOUS
     Route: 058
     Dates: start: 20060101
  3. LANTUS [Concomitant]
  4. ISTALOL (TIMOLOL MALEATE) [Concomitant]
  5. PRILOSEC /00661201/ (OMEPRAZOLE) [Concomitant]
  6. LIPITOR [Concomitant]

REACTIONS (2)
  - BLOOD GLUCOSE DECREASED [None]
  - HYPOGLYCAEMIC UNCONSCIOUSNESS [None]
